FAERS Safety Report 23442802 (Version 1)
Quarter: 2024Q1

REPORT INFORMATION
  Report Type: Spontaneous
  Country: US (occurrence: US)
  Receive Date: 20240125
  Receipt Date: 20240125
  Transmission Date: 20240410
  Serious: Yes (Other)
  Sender: FDA-Public Use
  Company Number: US-MYLANLABS-2024M1007584

PATIENT
  Age: 57 Year
  Sex: Female

DRUGS (3)
  1. IBUPROFEN [Suspect]
     Active Substance: IBUPROFEN
     Indication: Pericarditis
     Dosage: UNK,  TREATMENT WAS STOPPED AFTER IMPROVEMENT.
     Route: 065
  2. COLCHICINE [Suspect]
     Active Substance: COLCHICINE
     Indication: Pericarditis
     Dosage: UNK
     Route: 065
  3. COLCHICINE [Suspect]
     Active Substance: COLCHICINE
     Dosage: UNK  TREATMENT WAS STOPPED AFTER IMPROVEMENT, AND AFTERWARDS, RE-STARTED
     Route: 065

REACTIONS (2)
  - Drug ineffective for unapproved indication [Unknown]
  - Off label use [Unknown]
